FAERS Safety Report 6212288-5 (Version None)
Quarter: 2009Q2

REPORT INFORMATION
  Report Type: 
  Country: None (occurrence: None)
  Receive Date: 20090602
  Receipt Date: 20090525
  Transmission Date: 20091009
  Serious: Yes (Other)
  Sender: FDA-Public Use
  Company Number: JP-MERCK-0905USA01867

PATIENT
  Age: 78 Year
  Sex: Female

DRUGS (6)
  1. FOSAMAX [Suspect]
     Indication: OSTEOPOROSIS
     Route: 048
  2. LAXOBERON [Suspect]
     Indication: ENDOSCOPY LARGE BOWEL
     Route: 048
     Dates: start: 20090430, end: 20090430
  3. ROCALTROL [Concomitant]
     Indication: OSTEOPOROSIS
     Route: 048
  4. MAGMITT [Concomitant]
     Indication: CONSTIPATION
     Route: 048
  5. CALCIUM POLYCARBOPHIL [Concomitant]
     Indication: IRRITABLE BOWEL SYNDROME
     Route: 048
  6. MYSLEE [Concomitant]
     Indication: INSOMNIA
     Route: 048

REACTIONS (4)
  - ABDOMINAL PAIN [None]
  - BRADYCARDIA [None]
  - LOSS OF CONSCIOUSNESS [None]
  - VOMITING [None]
